FAERS Safety Report 8087006 (Version 3)
Quarter: 2012Q4

REPORT INFORMATION
  Report Type: 
  Country: US (occurrence: US)
  Receive Date: 20110811
  Receipt Date: 20121126
  Transmission Date: 20130627
  Serious: Yes (Hospitalization)
  Sender: FDA-Public Use
  Company Number: US-BAYER-2011-070912

PATIENT
  Age: 24 Year
  Sex: Female
  Weight: 61.22 kg

DRUGS (5)
  1. YASMIN [Suspect]
     Indication: CONTRACEPTION
     Dosage: UNK
     Dates: start: 200302, end: 200611
  2. MULTIVITAMIN [Concomitant]
     Indication: SUPPLEMENTATION THERAPY
     Dosage: UNK UNK, QD
     Dates: start: 1998
  3. MOBIC [Concomitant]
     Dosage: 7.5 mg, UNK, 5-7 Days
  4. NSAID^S [Concomitant]
     Dosage: UNK
     Dates: start: 20061129
  5. METHYLPREDNISOLONE [Concomitant]
     Dosage: UNK
     Route: 048
     Dates: start: 20060911

REACTIONS (7)
  - Pulmonary embolism [Recovered/Resolved]
  - Deep vein thrombosis [None]
  - Chest pain [Recovered/Resolved]
  - Anxiety [None]
  - Anhedonia [None]
  - Fear [None]
  - Psychological trauma [None]
